FAERS Safety Report 8210415-1 (Version None)
Quarter: 2012Q1

REPORT INFORMATION
  Report Type: 
  Country: None (occurrence: None)
  Receive Date: 20120314
  Receipt Date: 20110309
  Transmission Date: 20120608
  Serious: No
  Sender: FDA-Public Use
  Company Number: US-ASTRAZENECA-2011SE13266

PATIENT
  Sex: Male

DRUGS (3)
  1. METOPROLOL SUCCINATE [Suspect]
     Dosage: GENERIC METOPROLOL
     Route: 048
     Dates: start: 20090101, end: 20090101
  2. METOPROLOL SUCCINATE [Suspect]
     Indication: HYPERTENSION
     Dosage: TOPROL XL
     Route: 048
     Dates: start: 19960101, end: 20090101
  3. METOPROLOL SUCCINATE [Suspect]
     Dosage: TOPROL XL
     Route: 048
     Dates: start: 20090101

REACTIONS (2)
  - BLOOD PRESSURE INCREASED [None]
  - DRUG INEFFECTIVE [None]
